FAERS Safety Report 7564838-4 (Version None)
Quarter: 2011Q2

REPORT INFORMATION
  Report Type: 
  Country: None (occurrence: None)
  Receive Date: 20110622
  Receipt Date: 20110119
  Transmission Date: 20111010
  Serious: No
  Sender: FDA-Public Use
  Company Number: US-MYLANLABS-2011S1000023

PATIENT
  Age: 16 Year
  Sex: Male

DRUGS (5)
  1. CLOZAPINE [Suspect]
     Route: 048
     Dates: start: 20101201, end: 20110101
  2. BENZTROPINE MESYLATE [Concomitant]
     Indication: EXTRAPYRAMIDAL DISORDER
  3. CLOZAPINE [Suspect]
     Route: 048
     Dates: start: 20110101
  4. CITALOPRAM HYDROBROMIDE [Concomitant]
     Indication: DEPRESSION
  5. CLOZAPINE [Suspect]
     Indication: SCHIZOPHRENIA
     Route: 048
     Dates: start: 20101208, end: 20101224

REACTIONS (4)
  - LEUKOPENIA [None]
  - STREPTOCOCCAL INFECTION [None]
  - GRANULOCYTOPENIA [None]
  - VIRAL INFECTION [None]
